FAERS Safety Report 7122896-5 (Version None)
Quarter: 2010Q4

REPORT INFORMATION
  Report Type: 
  Country: None (occurrence: None)
  Receive Date: 20101124
  Receipt Date: 20101116
  Transmission Date: 20110411
  Serious: Yes (Disabling)
  Sender: FDA-Public Use
  Company Number: JP-AMGEN-JPNCT2010001237

PATIENT

DRUGS (17)
  1. PANITUMUMAB [Suspect]
     Indication: COLORECTAL CANCER
     Dosage: 6 MG/KG, Q2WK
     Route: 041
     Dates: start: 20100907, end: 20101005
  2. IRINOTECAN HYDROCHLORIDE [Concomitant]
     Indication: COLORECTAL CANCER
     Route: 041
     Dates: start: 20100917, end: 20100921
  3. IRINOTECAN HYDROCHLORIDE [Concomitant]
     Route: 041
     Dates: start: 20100907, end: 20100921
  4. FLUOROURACIL [Concomitant]
     Indication: COLORECTAL CANCER
     Route: 040
     Dates: start: 20100917, end: 20100921
  5. FLUOROURACIL [Concomitant]
     Route: 041
     Dates: start: 20100917, end: 20100921
  6. FLUOROURACIL [Concomitant]
     Route: 040
     Dates: start: 20100907, end: 20100921
  7. FLUOROURACIL [Concomitant]
     Route: 041
     Dates: start: 20100907, end: 20100921
  8. CALCIUM LEVOFOLINATE [Concomitant]
     Indication: COLORECTAL CANCER
     Route: 041
     Dates: start: 20100917, end: 20100921
  9. CALCIUM LEVOFOLINATE [Concomitant]
     Route: 041
     Dates: start: 20100907, end: 20100921
  10. ANTIHISTAMINES [Concomitant]
     Indication: PROPHYLAXIS
     Route: 065
  11. CORTICOSTEROIDS [Concomitant]
     Indication: PROPHYLAXIS
     Route: 065
  12. KINDAVATE [Concomitant]
     Route: 062
  13. HIRUDOID SOFT [Concomitant]
     Route: 062
  14. HANGE-SHASHIN-TO [Concomitant]
     Route: 048
  15. DECADRON [Concomitant]
     Route: 048
  16. ZOFRAN [Concomitant]
     Route: 048
  17. HERBAL PREPARATION [Concomitant]
     Route: 048

REACTIONS (4)
  - ACNE [None]
  - DERMATITIS [None]
  - NECROTISING FASCIITIS [None]
  - WEIGHT DECREASED [None]
